FAERS Safety Report 20980041 (Version 1)
Quarter: 2022Q2

REPORT INFORMATION
  Report Type: Spontaneous
  Country: FR (occurrence: FR)
  Receive Date: 20220620
  Receipt Date: 20220620
  Transmission Date: 20220721
  Serious: Yes (Disabling)
  Sender: FDA-Public Use
  Company Number: FR-AFSSAPS-RN20221565

PATIENT
  Age: 15 Year
  Sex: Male

DRUGS (6)
  1. PANTOPRAZOLE [Suspect]
     Active Substance: PANTOPRAZOLE
     Indication: Prophylaxis
     Dosage: ONGOING TREATMENT
     Route: 065
     Dates: start: 202109
  2. VALACYCLOVIR HYDROCHLORIDE [Suspect]
     Active Substance: VALACYCLOVIR HYDROCHLORIDE
     Indication: Infection prophylaxis
     Dosage: CURRENT TREATMENT 500 MG TWICE A DAY
     Route: 065
     Dates: start: 202109
  3. PENICILLIN V [Suspect]
     Active Substance: PENICILLIN V
     Indication: Infection prophylaxis
     Dosage: ONGOING TREATMENT                   1 000 000 UI 2X/J
     Route: 065
     Dates: start: 202109
  4. CYAMEMAZINE [Suspect]
     Active Substance: CYAMEMAZINE
     Indication: Depression
     Dosage: ONGOING TREATMENT
     Route: 065
     Dates: start: 202109
  5. TACROLIMUS [Suspect]
     Active Substance: TACROLIMUS
     Indication: Product used for unknown indication
     Dosage: UNK
     Route: 065
     Dates: start: 202109, end: 202202
  6. URSODIOL [Concomitant]
     Active Substance: URSODIOL
     Indication: Product used for unknown indication
     Dosage: UNK
     Route: 065

REACTIONS (1)
  - Axonal neuropathy [Not Recovered/Not Resolved]

NARRATIVE: CASE EVENT DATE: 20211101
